FAERS Safety Report 6194693-9 (Version None)
Quarter: 2009Q2

REPORT INFORMATION
  Report Type: 
  Country: None (occurrence: None)
  Receive Date: 20090519
  Receipt Date: 20090506
  Transmission Date: 20091009
  Serious: Yes (Other)
  Sender: FDA-Public Use
  Company Number: US-ELI_LILLY_AND_COMPANY-US200905001252

PATIENT
  Sex: Female
  Weight: 75.737 kg

DRUGS (7)
  1. SOMATROPIN [Suspect]
     Indication: GROWTH HORMONE DEFICIENCY
     Dosage: 0.2 MG, DAILY (1/D)
     Dates: start: 20050601, end: 20080731
  2. LEVOXYL [Concomitant]
     Dosage: 0.1 MG, DAILY (1/D)
  3. ORAL CONTRACEPTIVE NOS [Concomitant]
  4. METFORMIN HCL [Concomitant]
  5. GLIPIZIDE [Concomitant]
  6. LISINOPRIL [Concomitant]
  7. CRESTOR [Concomitant]

REACTIONS (4)
  - BREAST CANCER [None]
  - BREAST CANCER FEMALE [None]
  - CONDITION AGGRAVATED [None]
  - DIABETES MELLITUS [None]
